FAERS Safety Report 10687879 (Version 6)
Quarter: 2016Q2

REPORT INFORMATION
  Report Type: Spontaneous
  Country: DE (occurrence: DE)
  Receive Date: 20150102
  Receipt Date: 20160614
  Transmission Date: 20160815
  Serious: Yes (Other)
  Sender: FDA-Public Use
  Company Number: DE-GLAXOSMITHKLINE-D0070181A

PATIENT
  Sex: Male
  Weight: 98 kg

DRUGS (6)
  1. PLAVIX [Concomitant]
     Active Substance: CLOPIDOGREL BISULFATE
  2. EUGLUCON [Concomitant]
     Active Substance: GLYBURIDE
  3. AVANDAMET [Suspect]
     Active Substance: METFORMIN HYDROCHLORIDE\ROSIGLITAZONE MALEATE
     Indication: PRODUCT USED FOR UNKNOWN INDICATION
     Dosage: UNK, U
     Route: 048
     Dates: start: 20060223, end: 20100225
  4. ASPIRIN. [Concomitant]
     Active Substance: ASPIRIN
  5. BELOC ZOK [Concomitant]
     Active Substance: METOPROLOL SUCCINATE
  6. ZOCOR [Concomitant]
     Active Substance: SIMVASTATIN

REACTIONS (4)
  - Cardiac failure congestive [Unknown]
  - Implantable defibrillator insertion [Unknown]
  - Myocardial infarction [Unknown]
  - Ischaemic cardiomyopathy [Unknown]
